FAERS Safety Report 5725007-3 (Version None)
Quarter: 2008Q2

REPORT INFORMATION
  Report Type: 
  Country: None (occurrence: None)
  Receive Date: 20080501
  Receipt Date: 20080423
  Transmission Date: 20081010
  Serious: Yes (Death)
  Sender: FDA-Public Use
  Company Number: BE-ROCHE-560639

PATIENT
  Sex: Male

DRUGS (2)
  1. XELODA [Suspect]
     Indication: GASTRIC CANCER
     Route: 065
  2. CISPLATIN [Concomitant]
     Indication: GASTRIC CANCER

REACTIONS (1)
  - MYOCARDIAL INFARCTION [None]
